FAERS Safety Report 17976534 (Version 1)
Quarter: 2020Q3

REPORT INFORMATION
  Report Type: Spontaneous
  Country: US (occurrence: US)
  Receive Date: 20200703
  Receipt Date: 20200703
  Transmission Date: 20201103
  Serious: Yes (Other)
  Sender: FDA-Public Use
  Company Number: US-TEVA-2020-US-1792967

PATIENT
  Age: 69 Year
  Sex: Female
  Weight: 65.77 kg

DRUGS (5)
  1. AUSTEDO [Suspect]
     Active Substance: DEUTETRABENAZINE
     Indication: TARDIVE DYSKINESIA
     Dosage: TITRATION
     Dates: start: 202001
  2. AUSTEDO [Suspect]
     Active Substance: DEUTETRABENAZINE
     Dosage: WAS ON THE DOSE FOR 6?7 WEEKS
  3. KLONOPIN [Concomitant]
     Active Substance: CLONAZEPAM
     Indication: ANXIETY
  4. AUSTEDO [Suspect]
     Active Substance: DEUTETRABENAZINE
     Dosage: TITRATION
  5. AUSTEDO [Suspect]
     Active Substance: DEUTETRABENAZINE
     Dosage: 48 MILLIGRAM DAILY;

REACTIONS (8)
  - Eye disorder [Unknown]
  - Reduced facial expression [Unknown]
  - Corneal reflex decreased [Unknown]
  - Drug ineffective [Unknown]
  - Dyskinesia [Unknown]
  - Feeling abnormal [Unknown]
  - Blindness [Unknown]
  - Eyelid disorder [Unknown]

NARRATIVE: CASE EVENT DATE: 2020
